FAERS Safety Report 6534493-0 (Version None)
Quarter: 2010Q1

REPORT INFORMATION
  Report Type: 
  Country: None (occurrence: None)
  Receive Date: 20100112
  Receipt Date: 20100106
  Transmission Date: 20100710
  Serious: Yes (Other)
  Sender: FDA-Public Use
  Company Number: FR-PFIZER INC-2010002230

PATIENT
  Sex: Female

DRUGS (2)
  1. TAHOR [Suspect]
     Indication: HYPERCHOLESTEROLAEMIA
     Dosage: UNK
     Dates: start: 20081101
  2. TAHOR [Suspect]
     Indication: HYPERTENSION

REACTIONS (1)
  - PARKINSON'S DISEASE [None]
